FAERS Safety Report 9904837 (Version 1)
Quarter: 2014Q1

REPORT INFORMATION
  Report Type: Spontaneous
  Country: IT (occurrence: None)
  Receive Date: 20140210
  Receipt Date: 20140210
  Transmission Date: 20141002
  Serious: Yes (Hospitalization)
  Sender: FDA-Public Use
  Company Number: SYM-2014-17089

PATIENT
  Age: 31 Year
  Sex: Male

DRUGS (3)
  1. XENAZINA [Suspect]
     Indication: AKATHISIA
     Route: 048
     Dates: start: 20140102, end: 20140104
  2. BIPERIDEN [Suspect]
     Indication: AKATHISIA
     Route: 048
     Dates: start: 20140105, end: 20140110
  3. RISPERDAL [Concomitant]

REACTIONS (3)
  - Confusional state [None]
  - Paranoia [None]
  - Abnormal behaviour [None]
